FAERS Safety Report 10678862 (Version 1)
Quarter: 2014Q4

REPORT INFORMATION
  Report Type: Spontaneous
  Country: US (occurrence: US)
  Receive Date: 20141229
  Receipt Date: 20141229
  Transmission Date: 20150529
  Serious: Yes (Other)
  Sender: FDA-Public Use
  Company Number: US-SA-2014SA178153

PATIENT
  Age: 68 Year
  Sex: Male

DRUGS (3)
  1. CYCLOPHOSPHAMIDE. [Suspect]
     Active Substance: CYCLOPHOSPHAMIDE
     Indication: CHRONIC LYMPHOCYTIC LEUKAEMIA
     Dosage: PATIENT RECEIVED 5 CYCLES
     Route: 065
     Dates: start: 2011
  2. FLUDARABINE PHOSPHATE. [Suspect]
     Active Substance: FLUDARABINE PHOSPHATE
     Indication: CHRONIC LYMPHOCYTIC LEUKAEMIA
     Dosage: PATIENT RECEIVED 5 CYCLES
     Route: 065
     Dates: start: 2011
  3. RITUXIMAB [Suspect]
     Active Substance: RITUXIMAB
     Indication: CHRONIC LYMPHOCYTIC LEUKAEMIA
     Dosage: PATIENT RECEIVED 5 CYCLES
     Route: 065
     Dates: start: 2011

REACTIONS (9)
  - Fatigue [Recovering/Resolving]
  - Septic shock [Unknown]
  - Night sweats [Recovering/Resolving]
  - Pyrexia [Recovering/Resolving]
  - Renal failure [Unknown]
  - Hypogammaglobulinaemia [Unknown]
  - Hodgkin^s disease [Recovering/Resolving]
  - Weight decreased [Recovering/Resolving]
  - Epstein-Barr virus infection [Recovering/Resolving]

NARRATIVE: CASE EVENT DATE: 201304
